FAERS Safety Report 9567334 (Version 2)
Quarter: 2013Q3

REPORT INFORMATION
  Report Type: Spontaneous
  Country: US (occurrence: US)
  Receive Date: 20130930
  Receipt Date: 20130930
  Transmission Date: 20140515
  Serious: No
  Sender: FDA-Public Use
  Company Number: US-AMGEN-USASP2012062926

PATIENT
  Age: 65 Year
  Sex: Female
  Weight: 77.1 kg

DRUGS (8)
  1. ENBREL [Suspect]
     Indication: RHEUMATOID ARTHRITIS
     Dosage: 50 MG, QWK
     Route: 058
     Dates: start: 20120817
  2. FOLIC ACID [Concomitant]
     Dosage: UNK
     Route: 048
  3. CLARITIN                           /00413701/ [Concomitant]
     Dosage: 10 MG, UNK
     Route: 048
  4. VITAMIN D                          /00107901/ [Concomitant]
     Dosage: 50000 UNIT, UNK
     Route: 048
  5. FISH OIL [Concomitant]
     Dosage: UNK
     Route: 048
  6. ZANTAC [Concomitant]
     Dosage: 75 UNK, UNK
     Route: 048
  7. ESTER C                            /00008001/ [Concomitant]
     Dosage: UNK
  8. METHOTREXATE [Concomitant]
     Dosage: 50MG/2ML, UNK
     Route: 058

REACTIONS (3)
  - Injection site reaction [Recovering/Resolving]
  - Injection site erythema [Recovering/Resolving]
  - Injection site swelling [Recovering/Resolving]
